FAERS Safety Report 6072258-7 (Version None)
Quarter: 2009Q1

REPORT INFORMATION
  Report Type: 
  Country: None (occurrence: None)
  Receive Date: 20090206
  Receipt Date: 20090206
  Transmission Date: 20090719
  Serious: Yes (Other)
  Sender: FDA-Public Use
  Company Number: None

PATIENT
  Age: 48 Year
  Sex: Female
  Weight: 60.3284 kg

DRUGS (1)
  1. OXYTROL [Suspect]
     Indication: HYPERTONIC BLADDER
     Dosage: CHANGE PATCH EVERY THREE DAYS TRANSDERMAL
     Route: 062
     Dates: start: 20090128, end: 20090131

REACTIONS (3)
  - HEADACHE [None]
  - PANIC ATTACK [None]
  - PRODUCT QUALITY ISSUE [None]
